FAERS Safety Report 9416671 (Version 1)
Quarter: 2013Q3

REPORT INFORMATION
  Report Type: Spontaneous
  Country: FR (occurrence: FR)
  Receive Date: 20130724
  Receipt Date: 20130724
  Transmission Date: 20140515
  Serious: Yes (Hospitalization)
  Sender: FDA-Public Use
  Company Number: FR-B.I. PHARMACEUTICALS,INC./RIDGEFIELD-2013-FF-01850FF

PATIENT
  Age: 52 Year
  Sex: Female

DRUGS (2)
  1. PRADAXA [Suspect]
     Indication: ATRIAL FIBRILLATION
     Route: 048
  2. XARELTO [Suspect]
     Indication: ATRIAL FIBRILLATION

REACTIONS (4)
  - Face oedema [Unknown]
  - Dysphonia [Unknown]
  - Chest pain [Unknown]
  - Oropharyngeal pain [Unknown]
